FAERS Safety Report 4509899-1 (Version None)
Quarter: 2004Q4

REPORT INFORMATION
  Report Type: 
  Country: None (occurrence: None)
  Receive Date: 20041119
  Receipt Date: 20041029
  Transmission Date: 20050328
  Serious: Yes (Hospitalization, Other)
  Sender: FDA-Public Use
  Company Number: US_0404102245

PATIENT
  Age: 45 Year
  Sex: Female

DRUGS (10)
  1. ZYPREXA [Suspect]
     Indication: BIPOLAR DISORDER
     Dosage: 50 MG/1 DAY
     Dates: start: 20010101, end: 20020731
  2. PROZAC [Concomitant]
     Dosage: 30 MG/1 DAY
  3. EFFEXOR XR [Concomitant]
  4. XANAX (ALPRAZOLAM DUM) [Concomitant]
  5. BENTYL [Concomitant]
  6. LIPITOR [Concomitant]
  7. IMDUR [Concomitant]
  8. PEPCID AC [Concomitant]
  9. GEODON [Concomitant]
  10. TOPAMAX [Concomitant]

REACTIONS (37)
  - ABDOMINAL DISTENSION [None]
  - ABDOMINAL PAIN UPPER [None]
  - ANGINA UNSTABLE [None]
  - ASTHENIA [None]
  - BACK PAIN [None]
  - BUNDLE BRANCH BLOCK LEFT [None]
  - CONFUSIONAL STATE [None]
  - CONSTIPATION [None]
  - CRYING [None]
  - DECREASED APPETITE [None]
  - DEHYDRATION [None]
  - DEPRESSION [None]
  - DIABETES MELLITUS NON-INSULIN-DEPENDENT [None]
  - DISTURBANCE IN ATTENTION [None]
  - DYSURIA [None]
  - ELECTROCARDIOGRAM T WAVE INVERSION [None]
  - EYE DISORDER [None]
  - FLATULENCE [None]
  - HEART RATE INCREASED [None]
  - HEPATIC STEATOSIS [None]
  - HUNGER [None]
  - HYPERLIPIDAEMIA [None]
  - HYPOKALAEMIA [None]
  - INSOMNIA [None]
  - ISCHAEMIA [None]
  - JOINT SPRAIN [None]
  - MUCOSAL DRYNESS [None]
  - NAUSEA [None]
  - PAIN IN EXTREMITY [None]
  - POLLAKIURIA [None]
  - RENAL CYST [None]
  - SEPSIS [None]
  - SOMNOLENCE [None]
  - THIRST [None]
  - URINARY TRACT INFECTION [None]
  - VISION BLURRED [None]
  - WEIGHT DECREASED [None]
